FAERS Safety Report 8019132-4 (Version None)
Quarter: 2012Q1

REPORT INFORMATION
  Report Type: 
  Country: None (occurrence: None)
  Receive Date: 20120103
  Receipt Date: 20111227
  Transmission Date: 20120608
  Serious: Yes (Hospitalization, Other)
  Sender: FDA-Public Use
  Company Number: US-BAYER-2011-045971

PATIENT
  Age: 39 Year
  Sex: Female
  Weight: 97.279 kg

DRUGS (2)
  1. YASMIN [Suspect]
     Dosage: UNK
     Route: 048
     Dates: start: 20041119, end: 20041209
  2. MOBIC [Concomitant]
     Indication: ARTHRITIS
     Dosage: UNK
     Dates: start: 20041119, end: 20041209

REACTIONS (8)
  - INJURY [None]
  - EMOTIONAL DISTRESS [None]
  - GENERAL PHYSICAL HEALTH DETERIORATION [None]
  - PAIN [None]
  - DEPRESSION [None]
  - ANHEDONIA [None]
  - ANXIETY [None]
  - DEEP VEIN THROMBOSIS [None]
